FAERS Safety Report 18387086 (Version 1)
Quarter: 2020Q4

REPORT INFORMATION
  Report Type: Report from Study
  Country: CO (occurrence: CO)
  Receive Date: 20201015
  Receipt Date: 20201015
  Transmission Date: 20210114
  Serious: Yes (Other)
  Sender: FDA-Public Use
  Company Number: NVSC2020CO275439

PATIENT
  Sex: Female
  Weight: 80 kg

DRUGS (2)
  1. KISQALI [Suspect]
     Active Substance: RIBOCICLIB
     Indication: BREAST CANCER
     Dosage: 600 MG, QD
     Route: 048
     Dates: start: 20190422
  2. FEMARA [Suspect]
     Active Substance: LETROZOLE
     Indication: BREAST CANCER
     Dosage: 2.5 MG, QD
     Route: 048
     Dates: start: 20190422

REACTIONS (7)
  - Alopecia [Unknown]
  - Paraesthesia [Unknown]
  - Asthenia [Unknown]
  - Blood calcium decreased [Unknown]
  - Decreased appetite [Unknown]
  - Blood potassium decreased [Unknown]
  - Oral mucosal exfoliation [Unknown]
